FAERS Safety Report 12834282 (Version 1)
Quarter: 2016Q4

REPORT INFORMATION
  Report Type: Spontaneous
  Country: DE (occurrence: DE)
  Receive Date: 20161010
  Receipt Date: 20161010
  Transmission Date: 20170207
  Serious: Yes (Congenital Anomaly, Other)
  Sender: FDA-Public Use
  Company Number: GXKR2016DE004654

PATIENT
  Sex: Female
  Weight: 3.48 kg

DRUGS (2)
  1. QUETIAPINE. [Suspect]
     Active Substance: QUETIAPINE
     Indication: PERSONALITY DISORDER
     Dosage: 600 MG, UNK
     Route: 064
     Dates: start: 20150530, end: 20160306
  2. QUETIAPINE. [Suspect]
     Active Substance: QUETIAPINE
     Dosage: 100 MG, UNK
     Route: 064

REACTIONS (2)
  - Failure to thrive [Not Recovered/Not Resolved]
  - Hypoacusis [Not Recovered/Not Resolved]
